FAERS Safety Report 18525063 (Version 1)
Quarter: 2020Q4

REPORT INFORMATION
  Report Type: Spontaneous
  Country: US (occurrence: US)
  Receive Date: 20201119
  Receipt Date: 20201119
  Transmission Date: 20210114
  Serious: Yes (Other)
  Sender: FDA-Public Use
  Company Number: US-009507513-2011USA011153

PATIENT
  Sex: Female

DRUGS (2)
  1. KEYTRUDA [Suspect]
     Active Substance: PEMBROLIZUMAB
     Indication: ENDOMETRIAL CANCER
  2. LENVATINIB MESYLATE [Suspect]
     Active Substance: LENVATINIB MESYLATE
     Indication: ENDOMETRIAL CANCER
     Dosage: 20 MILLIGRAM, ONCE DAILY
     Route: 048
     Dates: start: 20201107

REACTIONS (5)
  - Asthenia [Recovered/Resolved]
  - Gait disturbance [Unknown]
  - Ill-defined disorder [Recovered/Resolved]
  - Dizziness [Recovered/Resolved]
  - Cancer pain [Unknown]
